FAERS Safety Report 14407380 (Version 3)
Quarter: 2021Q3

REPORT INFORMATION
  Report Type: Other
  Country: US (occurrence: US)
  Receive Date: 20180118
  Receipt Date: 20210707
  Transmission Date: 20211014
  Serious: Yes (Other)
  Sender: FDA-Public Use
  Company Number: US-ROCHE-2053887

PATIENT
  Age: 57 Year
  Sex: Female
  Weight: 56.75 kg

DRUGS (14)
  1. RECLAST [Concomitant]
     Active Substance: ZOLEDRONIC ACID
     Indication: OSTEOPOROSIS
     Dates: start: 20160418
  2. PROBIOTICA [Concomitant]
     Active Substance: PROBIOTICS NOS
     Route: 048
  3. MAGNESIUM [Concomitant]
     Active Substance: MAGNESIUM
     Route: 048
  4. CETRIZINE [Concomitant]
     Active Substance: CETIRIZINE HYDROCHLORIDE
     Dosage: 10 MG TAB BY MOUTH DAILY
     Route: 048
  5. OCREVUS [Suspect]
     Active Substance: OCRELIZUMAB
     Route: 042
  6. CALCIUM CARBONATE. [Concomitant]
     Active Substance: CALCIUM CARBONATE
     Route: 048
  7. SUCRALFATE. [Concomitant]
     Active Substance: SUCRALFATE
     Dosage: 10 ML BEFORE MEAL AND BEDTIME
  8. CYANOCOBALAMINE [Concomitant]
     Active Substance: CYANOCOBALAMIN
     Route: 048
  9. GLUTAMINE [Concomitant]
     Active Substance: GLUTAMINE
     Route: 048
  10. OCREVUS [Suspect]
     Active Substance: OCRELIZUMAB
     Dosage: FULL DOSE?ONGOING NO
     Route: 042
     Dates: start: 2018, end: 20201022
  11. OCREVUS [Suspect]
     Active Substance: OCRELIZUMAB
     Route: 042
     Dates: start: 20171114
  12. OCREVUS [Suspect]
     Active Substance: OCRELIZUMAB
     Dosage: 2 PARTS TO FIRST INFUSION?ONGOING NO
     Route: 042
     Dates: start: 20180507
  13. OCREVUS [Suspect]
     Active Substance: OCRELIZUMAB
     Indication: RELAPSING-REMITTING MULTIPLE SCLEROSIS
     Dosage: DATE OF TREATMENT: 07/MAY/2018, 13/NOV/2018, 08/MAY/2019, 06/NOV/2019, 24/APR/2020, 22/OCT/2020.
     Route: 042
     Dates: start: 20171031
  14. COVID?19 VACCINE [Concomitant]
     Dosage: ONGOING NO
     Dates: start: 202103, end: 202104

REACTIONS (17)
  - Painful respiration [Unknown]
  - Throat irritation [Unknown]
  - Eye swelling [Not Recovered/Not Resolved]
  - COVID-19 [Recovering/Resolving]
  - Intentional product use issue [Unknown]
  - Cough [Unknown]
  - Productive cough [Unknown]
  - Eye inflammation [Recovered/Resolved]
  - Erythema [Not Recovered/Not Resolved]
  - Multiple sclerosis [Recovering/Resolving]
  - Skin exfoliation [Not Recovered/Not Resolved]
  - Seborrhoeic dermatitis [Recovered/Resolved]
  - Gastrointestinal disorder [Unknown]
  - Chest pain [Unknown]
  - Rhinorrhoea [Unknown]
  - Ear infection [Recovered/Resolved]
  - Seasonal allergy [Not Recovered/Not Resolved]

NARRATIVE: CASE EVENT DATE: 201712
